FAERS Safety Report 4823868-3 (Version None)
Quarter: 2005Q4

REPORT INFORMATION
  Report Type: 
  Country: None (occurrence: None)
  Receive Date: 20051107
  Receipt Date: 20051026
  Transmission Date: 20060501
  Serious: Yes (Hospitalization)
  Sender: FDA-Public Use
  Company Number: 2003168460US

PATIENT
  Age: 58 Year
  Sex: Male
  Weight: 65.4087 kg

DRUGS (7)
  1. BLINDED THERAPY (BLINDED THERAPY) [Suspect]
     Indication: COLORECTAL CANCER
     Dosage: (1 IN 1 D), ORAL
     Route: 048
     Dates: start: 20030702
  2. IRINOTECAN HCL [Suspect]
     Indication: COLORECTAL CANCER
     Dosage: 320 MG (320 MG, CYCLICAL), INTRAVENOUS
     Route: 042
     Dates: start: 20030702
  3. FLUOROURACIL [Suspect]
     Indication: COLORECTAL CANCER
     Dosage: 700MG/4300MG (CYCLICAL), INTRAVENOUS
     Route: 042
     Dates: start: 20030702
  4. LEUCOVORIN CALCIUM [Suspect]
     Indication: COLORECTAL CANCER
     Dosage: 700 MG (700 MG, CYCLICAL), INTRAVENOUS
     Route: 042
     Dates: start: 20030702, end: 20030728
  5. CLONIDINE [Concomitant]
  6. WARFARIN SODIUM [Concomitant]
  7. GLIPIZIDE [Concomitant]

REACTIONS (4)
  - DEHYDRATION [None]
  - DEVICE RELATED INFECTION [None]
  - RENAL FAILURE [None]
  - SUPERINFECTION [None]
